FAERS Safety Report 16095685 (Version 3)
Quarter: 2019Q2

REPORT INFORMATION
  Report Type: Report from Study
  Country: US (occurrence: US)
  Receive Date: 20190320
  Receipt Date: 20190528
  Transmission Date: 20190711
  Serious: Yes (Other)
  Sender: FDA-Public Use
  Company Number: PHEH2019US011472

PATIENT
  Sex: Male

DRUGS (1)
  1. AFINITOR [Suspect]
     Active Substance: EVEROLIMUS
     Indication: PARTIAL SEIZURES
     Dosage: 10 MG, QD
     Route: 048
     Dates: start: 20190222

REACTIONS (15)
  - Diarrhoea [Unknown]
  - Rash [Unknown]
  - Condition aggravated [Not Recovered/Not Resolved]
  - Flatulence [Unknown]
  - Poor quality sleep [Unknown]
  - Blood glucose increased [Recovering/Resolving]
  - Retching [Unknown]
  - Tremor [Unknown]
  - Insomnia [Unknown]
  - Erythema [Unknown]
  - Seizure [Not Recovered/Not Resolved]
  - Oral mucosal erythema [Unknown]
  - Blood triglycerides increased [Unknown]
  - Eructation [Unknown]
  - Furuncle [Recovered/Resolved]
